FAERS Safety Report 7963333-8 (Version None)
Quarter: 2011Q4

REPORT INFORMATION
  Report Type: 
  Country: None (occurrence: None)
  Receive Date: 20111208
  Receipt Date: 20111201
  Transmission Date: 20120403
  Serious: Yes (Other)
  Sender: FDA-Public Use
  Company Number: US-AMGEN-USASP2011063820

PATIENT
  Age: 72 Year
  Sex: Female

DRUGS (16)
  1. FISH OIL [Concomitant]
  2. PLAQUENIL [Concomitant]
  3. LOPRESSOR [Concomitant]
  4. CENTRUM [Concomitant]
  5. PROLIA [Suspect]
     Indication: OSTEOPOROSIS POSTMENOPAUSAL
     Dosage: 60 MG, Q6MO
     Dates: start: 20110718
  6. ASPIRIN [Concomitant]
     Dosage: UNK
  7. ALBUTEROL [Concomitant]
  8. AMBIEN [Concomitant]
  9. GLUCOPHAGE [Concomitant]
  10. NEXIUM [Concomitant]
  11. GABAPENTIN [Concomitant]
     Dosage: UNK UNK, BID
  12. OXYCODONE HCL [Concomitant]
  13. CALCIUM [Concomitant]
     Dosage: UNK
  14. INSULIN [Concomitant]
  15. LOTREL [Concomitant]
  16. FLONASE [Concomitant]

REACTIONS (8)
  - CARDIAC MURMUR [None]
  - DIVERTICULITIS [None]
  - VASODILATATION [None]
  - GASTRITIS [None]
  - BLOOD PRESSURE INCREASED [None]
  - BLOOD GLUCOSE INCREASED [None]
  - NAUSEA [None]
  - FLATULENCE [None]
